FAERS Safety Report 9663481 (Version 2)
Quarter: 2014Q1

REPORT INFORMATION
  Report Type: Spontaneous
  Country: GB (occurrence: GB)
  Receive Date: 20131101
  Receipt Date: 20140205
  Transmission Date: 20141002
  Serious: Yes (Death, Other)
  Sender: FDA-Public Use
  Company Number: GB-ACCORD-020086

PATIENT
  Age: 83 Year
  Sex: Female
  Weight: 50.6 kg

DRUGS (23)
  1. CLOPIDOGREL [Suspect]
     Indication: CAROTID ARTERY STENOSIS
     Route: 048
     Dates: start: 20130415, end: 20130503
  2. PRADAXA [Suspect]
     Indication: EMBOLIC STROKE
     Route: 048
     Dates: start: 20130419, end: 20130503
  3. LANSOPRAZOLE [Concomitant]
  4. TRIMETHOPRIM/TRIMETHOPRIM LACTATE/TRIMETHOPRIM SULFATE [Concomitant]
  5. OMEPRAZOLE [Concomitant]
     Route: 042
  6. CYCLIZINE [Concomitant]
  7. ALENDRONIC ACID [Concomitant]
  8. AMLODIPINE [Concomitant]
  9. TOLTERODINE/TOLTERODINE L-TARTRATE [Concomitant]
  10. CITALOPRAM [Concomitant]
  11. MICROLAX [Concomitant]
  12. RANITIDINE [Concomitant]
  13. PREDNISOLONE [Concomitant]
  14. BENDROFLUMETHIAZIDE [Concomitant]
  15. RAMIPRIL [Concomitant]
  16. SIMVASTATIN [Concomitant]
  17. MAGNESIUM GLYCEROPHOSPHATE [Concomitant]
  18. LACTULOSE [Concomitant]
  19. ATORVASTATIN [Concomitant]
  20. LAXIDO [Concomitant]
  21. ADCAL-D3 [Concomitant]
  22. NO DRUG NAME [Concomitant]
     Route: 054
  23. TRAMADOL [Concomitant]

REACTIONS (2)
  - Sepsis [Fatal]
  - Gastrointestinal haemorrhage [Fatal]
